FAERS Safety Report 21300197 (Version 1)
Quarter: 2022Q3

REPORT INFORMATION
  Report Type: Spontaneous
  Country: US (occurrence: US)
  Receive Date: 20220906
  Receipt Date: 20220906
  Transmission Date: 20221027
  Serious: Yes (Other)
  Sender: FDA-Public Use
  Company Number: US-BRISTOL-MYERS SQUIBB COMPANY-2022-100959

PATIENT
  Age: 85 Year
  Sex: Female
  Weight: 77.9 kg

DRUGS (1)
  1. REVLIMID [Suspect]
     Active Substance: LENALIDOMIDE
     Indication: Diffuse large B-cell lymphoma
     Dosage: FREQ : ONCE DAILY FOR 21 AND 7 DAYS OFF
     Route: 048
     Dates: start: 20220729

REACTIONS (2)
  - Drug ineffective [Unknown]
  - Intentional product use issue [Unknown]
